FAERS Safety Report 15651558 (Version 2)
Quarter: 2018Q4

REPORT INFORMATION
  Report Type: Spontaneous
  Country: CA (occurrence: CA)
  Receive Date: 20181123
  Receipt Date: 20181205
  Transmission Date: 20190205
  Serious: Yes (Other)
  Sender: FDA-Public Use
  Company Number: CA-PFIZER INC-2018478452

PATIENT
  Age: 46 Year
  Sex: Female
  Weight: 72 kg

DRUGS (1)
  1. METHOTREXATE SODIUM. [Suspect]
     Active Substance: METHOTREXATE SODIUM
     Dosage: UNK

REACTIONS (4)
  - Rheumatoid arthritis [Unknown]
  - Drug intolerance [Unknown]
  - Nodule [Unknown]
  - Drug hypersensitivity [Unknown]
